FAERS Safety Report 21800559 (Version 1)
Quarter: 2022Q4

REPORT INFORMATION
  Report Type: Spontaneous
  Country: US (occurrence: None)
  Receive Date: 20221229
  Receipt Date: 20221229
  Transmission Date: 20230113
  Serious: Yes (Other)
  Sender: FDA-Public Use
  Company Number: None

PATIENT
  Age: 53 Year
  Sex: Female
  Weight: 67.5 kg

DRUGS (2)
  1. BUPRENORPHINE\NALOXONE [Suspect]
     Active Substance: BUPRENORPHINE\NALOXONE
     Indication: Drug use disorder
     Dosage: FREQUENCY : 3 TIMES A DAY;?
     Route: 060
     Dates: start: 20160809
  2. BUPRENORPHINE\NALOXONE [Suspect]
     Active Substance: BUPRENORPHINE\NALOXONE
     Indication: Dependence

REACTIONS (8)
  - Tooth fracture [None]
  - Lymphadenopathy [None]
  - Tooth infection [None]
  - Bone graft [None]
  - Inner ear disorder [None]
  - Neoplasm [None]
  - Tympanic membrane disorder [None]
  - Complication associated with device [None]

NARRATIVE: CASE EVENT DATE: 20171201
